FAERS Safety Report 7184046-9 (Version None)
Quarter: 2010Q4

REPORT INFORMATION
  Report Type: 
  Country: None (occurrence: None)
  Receive Date: 20101222
  Receipt Date: 20101209
  Transmission Date: 20110411
  Serious: Yes (Other)
  Sender: FDA-Public Use
  Company Number: PHHY2010CA74729

PATIENT
  Sex: Female

DRUGS (11)
  1. ALISKIREN ALI+ [Suspect]
     Indication: HYPERTENSION
     Dosage: 150 MG, UNK
     Route: 048
     Dates: start: 20091211
  2. LISINOPRIL [Concomitant]
  3. PROVERA [Concomitant]
  4. PREMARIN [Concomitant]
     Dosage: 0.3 ID
  5. TRANDATE [Concomitant]
     Dosage: 200 MG, TID
  6. PANTOLOC [Concomitant]
     Dosage: 40 MG, ID
  7. AVAPRO [Concomitant]
     Dosage: 150 MG, ID
  8. CARDURA [Concomitant]
  9. AAS [Concomitant]
     Route: 048
  10. CALCITE [Concomitant]
     Dosage: 500 DAILY,
  11. CALCITE [Concomitant]
     Dosage: 400, TWICE DAY

REACTIONS (5)
  - BREAST NEOPLASM [None]
  - MASTECTOMY [None]
  - METASTASES TO BONE [None]
  - METASTASES TO LIVER [None]
  - METASTASES TO LUNG [None]
